FAERS Safety Report 7116821-0 (Version None)
Quarter: 2010Q4

REPORT INFORMATION
  Report Type: 
  Country: None (occurrence: None)
  Receive Date: 20101122
  Receipt Date: 20101110
  Transmission Date: 20110411
  Serious: Yes (Other)
  Sender: FDA-Public Use
  Company Number: US-RB-015238-10

PATIENT
  Sex: Male

DRUGS (1)
  1. MUCINEX [Suspect]
     Dosage: UNKNOWN AMOUNT TAKEN OVER A FEW DAYS
     Route: 048

REACTIONS (1)
  - HAEMOPTYSIS [None]
